FAERS Safety Report 19953124 (Version 3)
Quarter: 2021Q4

REPORT INFORMATION
  Report Type: Spontaneous
  Country: US (occurrence: US)
  Receive Date: 20211013
  Receipt Date: 20211111
  Transmission Date: 20220303
  Serious: No
  Sender: FDA-Public Use
  Company Number: US-BEH-2021136620

PATIENT
  Sex: Female

DRUGS (1)
  1. HIZENTRA [Suspect]
     Active Substance: HUMAN IMMUNOGLOBULIN G
     Dosage: 20 GRAM, QW
     Route: 058
     Dates: start: 2020

REACTIONS (3)
  - Infusion site pruritus [Unknown]
  - Infusion site erythema [Unknown]
  - Infusion site mass [Unknown]

NARRATIVE: CASE EVENT DATE: 20210901
